FAERS Safety Report 24526243 (Version 2)
Quarter: 2024Q4

REPORT INFORMATION
  Report Type: Spontaneous
  Country: US (occurrence: US)
  Receive Date: 20241021
  Receipt Date: 20241128
  Transmission Date: 20250114
  Serious: No
  Sender: ROCHE
  Company Number: US-ROCHE-10000106235

PATIENT
  Age: 27 Year
  Sex: Female
  Weight: 104.33 kg

DRUGS (3)
  1. XOLAIR [Suspect]
     Active Substance: OMALIZUMAB
     Indication: Urticaria
     Dosage: IN THE BELLY
     Route: 058
     Dates: start: 2024
  2. XOLAIR [Suspect]
     Active Substance: OMALIZUMAB
     Dosage: 2 OF 150MG PFS
     Route: 058
     Dates: start: 2023, end: 2024
  3. LAMOTRIGINE [Concomitant]
     Active Substance: LAMOTRIGINE
     Indication: Bipolar disorder
     Dosage: PILL
     Route: 048

REACTIONS (6)
  - Product use issue [Unknown]
  - Product dose omission issue [Unknown]
  - Syringe issue [Unknown]
  - Product complaint [Unknown]
  - Accidental exposure to product [Unknown]
  - No adverse event [Unknown]

NARRATIVE: CASE EVENT DATE: 20241010
